FAERS Safety Report 9783106 (Version 3)
Quarter: 2014Q1

REPORT INFORMATION
  Report Type: Report from Study
  Country: CA (occurrence: CA)
  Receive Date: 20131226
  Receipt Date: 20140123
  Transmission Date: 20141002
  Serious: Yes (Other)
  Sender: FDA-Public Use
  Company Number: CA-JNJFOC-20131115085

PATIENT
  Age: 56 Year
  Sex: Male
  Weight: 90.7 kg

DRUGS (12)
  1. REMICADE [Suspect]
     Indication: COLITIS ULCERATIVE
     Route: 042
     Dates: start: 201211
  2. REMICADE [Suspect]
     Indication: COLITIS ULCERATIVE
     Route: 042
     Dates: start: 20121220
  3. REMICADE [Suspect]
     Indication: COLITIS ULCERATIVE
     Route: 042
     Dates: start: 20131118
  4. REMICADE [Suspect]
     Indication: ANKYLOSING SPONDYLITIS
     Route: 042
     Dates: start: 20121220
  5. REMICADE [Suspect]
     Indication: ANKYLOSING SPONDYLITIS
     Route: 042
     Dates: start: 201211
  6. REMICADE [Suspect]
     Indication: ANKYLOSING SPONDYLITIS
     Route: 042
     Dates: start: 20131118
  7. REMICADE [Suspect]
     Indication: CROHN^S DISEASE
     Route: 042
     Dates: start: 201211
  8. REMICADE [Suspect]
     Indication: CROHN^S DISEASE
     Route: 042
     Dates: start: 20121220
  9. REMICADE [Suspect]
     Indication: CROHN^S DISEASE
     Route: 042
     Dates: start: 20131118
  10. HYDROCORTISONE [Concomitant]
     Indication: PREMEDICATION
     Route: 042
  11. ATENOLOL [Concomitant]
     Route: 048
  12. COVERSYL [Concomitant]
     Route: 048
     Dates: start: 201309

REACTIONS (5)
  - Rheumatic disorder [Recovering/Resolving]
  - Rash [Not Recovered/Not Resolved]
  - Tendon disorder [Unknown]
  - Arthralgia [Recovering/Resolving]
  - Weight decreased [Unknown]
